FAERS Safety Report 19464465 (Version 4)
Quarter: 2021Q4

REPORT INFORMATION
  Report Type: Report from Study
  Country: ES (occurrence: ES)
  Receive Date: 20210626
  Receipt Date: 20211117
  Transmission Date: 20220303
  Serious: Yes (Other)
  Sender: FDA-Public Use
  Company Number: ES-MYLANLABS-2021M1034815

PATIENT

DRUGS (1)
  1. EFAVIRENZ [Suspect]
     Active Substance: EFAVIRENZ
     Indication: Antiretroviral therapy
     Dosage: UNK
     Route: 065

REACTIONS (3)
  - Thrombosis [Unknown]
  - Hypertension [Unknown]
  - No adverse event [Unknown]
